FAERS Safety Report 12176854 (Version 3)
Quarter: 2016Q2

REPORT INFORMATION
  Report Type: Spontaneous
  Country: US (occurrence: US)
  Receive Date: 20160314
  Receipt Date: 20160429
  Transmission Date: 20160815
  Serious: No
  Sender: FDA-Public Use
  Company Number: US-PFIZER INC-2016151122

PATIENT
  Age: 61 Year
  Sex: Female
  Weight: 113.38 kg

DRUGS (1)
  1. GABAPENTIN. [Suspect]
     Active Substance: GABAPENTIN
     Indication: PAIN
     Dosage: 800 MG, 4X/DAY (AND SPLIT IN HALF FOR 400MG AT BEDTIME)

REACTIONS (1)
  - Drug ineffective for unapproved indication [Unknown]
